FAERS Safety Report 9549199 (Version 5)
Quarter: 2013Q4

REPORT INFORMATION
  Report Type: Report from Study
  Country: FR (occurrence: FR)
  Receive Date: 20130924
  Receipt Date: 20131227
  Transmission Date: 20140711
  Serious: Yes (Hospitalization, Other)
  Sender: FDA-Public Use
  Company Number: FR-B.I. PHARMACEUTICALS,INC./RIDGEFIELD-2013-FF-01634FF

PATIENT
  Age: 68 Year
  Sex: Female
  Weight: 60 kg

DRUGS (9)
  1. BIBW 2992 [Suspect]
     Indication: BREAST CANCER
     Dosage: 30 MG
     Route: 048
     Dates: start: 20130404, end: 20130502
  2. BIBW 2992 [Suspect]
     Dosage: 20 MG
     Route: 048
     Dates: start: 20130517, end: 20130818
  3. BIBW 2992 [Suspect]
     Dosage: 20 MG
     Route: 048
     Dates: start: 20130904
  4. DOCETAXEL [Suspect]
     Indication: BREAST CANCER
     Dosage: DOSE PER APPLICATION: 75 MG/M?, DAILY DOSE: 125MG,25
     Route: 042
     Dates: start: 20130403, end: 20130424
  5. DOCETAXEL [Suspect]
     Dosage: 60 MG/M?
     Route: 042
     Dates: start: 20130517, end: 20130729
  6. CRESTOR [Suspect]
     Indication: GOUT
     Dosage: 10 MG
     Route: 048
     Dates: end: 20130828
  7. ALLOPURINOL [Suspect]
     Indication: GOUT
     Dosage: 200 MG
     Route: 048
     Dates: end: 20130828
  8. OKIMUS [Suspect]
     Indication: BONE PAIN
     Dosage: STRENGTH: 80/60 MG, DAILY DOSE: 160/120 MG
     Route: 048
     Dates: end: 20130828
  9. LOPERAMIDE [Concomitant]

REACTIONS (3)
  - Deep vein thrombosis [Not Recovered/Not Resolved]
  - Hepatocellular injury [Recovered/Resolved]
  - Ejection fraction decreased [Recovered/Resolved]
